FAERS Safety Report 24003893 (Version 1)
Quarter: 2024Q2

REPORT INFORMATION
  Report Type: Spontaneous
  Country: US (occurrence: US)
  Receive Date: 20240624
  Receipt Date: 20240624
  Transmission Date: 20240715
  Serious: Yes (Other)
  Sender: FDA-Public Use
  Company Number: US-Stemline Therapeutics, Inc.-2024ST003462

PATIENT
  Age: 67 Year
  Sex: Female

DRUGS (1)
  1. ORSERDU [Suspect]
     Active Substance: ELACESTRANT
     Indication: Product used for unknown indication
     Dosage: 345MG DAILY
     Route: 048
     Dates: start: 20240510

REACTIONS (6)
  - Breast pain [Unknown]
  - Memory impairment [Unknown]
  - Product use complaint [Unknown]
  - Product size issue [Unknown]
  - Nausea [Unknown]
  - Abdominal pain upper [Unknown]
